FAERS Safety Report 23351312 (Version 2)
Quarter: 2024Q1

REPORT INFORMATION
  Report Type: Spontaneous
  Country: JP (occurrence: JP)
  Receive Date: 20231229
  Receipt Date: 20240130
  Transmission Date: 20240410
  Serious: Yes (Hospitalization)
  Sender: FDA-Public Use
  Company Number: JP-NOVOPROD-1156827

PATIENT
  Age: 6 Decade
  Sex: Male

DRUGS (3)
  1. NOVORAPID [Suspect]
     Active Substance: INSULIN ASPART
     Dosage: 600 IU
     Route: 058
     Dates: start: 20230511
  2. NOVORAPID [Suspect]
     Active Substance: INSULIN ASPART
     Indication: Latent autoimmune diabetes in adults
     Dosage: 60 IU, QD
     Route: 058
     Dates: start: 2017
  3. TRESIBA [Concomitant]
     Active Substance: INSULIN DEGLUDEC
     Indication: Latent autoimmune diabetes in adults
     Dosage: 20 IU, QD
     Route: 058
     Dates: start: 2017

REACTIONS (4)
  - Suicide attempt [Recovered/Resolved]
  - Hypoglycaemia [Recovering/Resolving]
  - Hyperglycaemia [Recovered/Resolved]
  - Intentional overdose [Unknown]

NARRATIVE: CASE EVENT DATE: 20230501
